FAERS Safety Report 8370931-9 (Version None)
Quarter: 2012Q1

REPORT INFORMATION
  Report Type: 
  Country: None (occurrence: None)
  Receive Date: 20120323
  Receipt Date: 20110318
  Transmission Date: 20120608
  Serious: Yes (Death)
  Sender: FDA-Public Use
  Company Number: 163-21880-11013018

PATIENT
  Age: 83 Year
  Sex: Female

DRUGS (1)
  1. REVLIMID [Suspect]
     Indication: B-CELL LYMPHOMA
     Dosage: 25 MG, 1 IN 1 D, PO
     Route: 048
     Dates: start: 20101001

REACTIONS (1)
  - CARDIAC FAILURE CONGESTIVE [None]
